FAERS Safety Report 10174310 (Version 1)
Quarter: 2014Q2

REPORT INFORMATION
  Report Type: Report from Study
  Country: FR (occurrence: FR)
  Receive Date: 20140515
  Receipt Date: 20140515
  Transmission Date: 20141212
  Serious: Yes (Other)
  Sender: FDA-Public Use
  Company Number: FR-TEVA-479575ISR

PATIENT
  Age: 24 Year
  Sex: Female
  Weight: 56 kg

DRUGS (1)
  1. COPAXONE [Suspect]
     Indication: MULTIPLE SCLEROSIS
     Dates: start: 201312

REACTIONS (7)
  - Multiple sclerosis relapse [Unknown]
  - Pyramidal tract syndrome [Unknown]
  - Vestibular disorder [Unknown]
  - Diplopia [Unknown]
  - Asthenia [Unknown]
  - Central nervous system lesion [Unknown]
  - Nuclear magnetic resonance imaging abnormal [Unknown]
